FAERS Safety Report 8206819-3 (Version None)
Quarter: 2012Q1

REPORT INFORMATION
  Report Type: 
  Country: None (occurrence: None)
  Receive Date: 20120312
  Receipt Date: 20120229
  Transmission Date: 20120608
  Serious: Yes (Hospitalization)
  Sender: FDA-Public Use
  Company Number: USA/USA/11/0020692

PATIENT
  Age: 43 Year
  Sex: Male

DRUGS (5)
  1. BUPROPION HCL [Suspect]
     Indication: SCHIZOAFFECTIVE DISORDER
     Dosage: 150 MG, 1 IN 1 D
  2. CLONAZEPAM [Suspect]
     Indication: SCHIZOAFFECTIVE DISORDER
     Dosage: 0.5 MG, 1 IN 1 D
  3. RISPERDAL CONSTA [Suspect]
     Dosage: 37.5 MG, 1 IN 2 WK, INTRAMUSCULAR SINCE 4 YEARS - ONGOING
     Route: 030
  4. LAMISIL [Suspect]
     Indication: NAIL INFECTION
  5. VALPROIC ACID [Suspect]
     Indication: SCHIZOAFFECTIVE DISORDER

REACTIONS (9)
  - DRUG INTERACTION [None]
  - PSYCHIATRIC SYMPTOM [None]
  - CONDITION AGGRAVATED [None]
  - HALLUCINATION, AUDITORY [None]
  - PSYCHOMOTOR HYPERACTIVITY [None]
  - AGITATION [None]
  - COGNITIVE DISORDER [None]
  - FEAR OF EATING [None]
  - THOUGHT BLOCKING [None]
